FAERS Safety Report 7155060-4 (Version None)
Quarter: 2010Q4

REPORT INFORMATION
  Report Type: 
  Country: None (occurrence: None)
  Receive Date: 20101214
  Receipt Date: 20100127
  Transmission Date: 20110411
  Serious: Yes (Hospitalization)
  Sender: FDA-Public Use
  Company Number: US-AMGEN-QUU365775

PATIENT

DRUGS (7)
  1. ENBREL [Suspect]
     Indication: RHEUMATOID ARTHRITIS
     Dosage: 50 MG, QWK
     Route: 058
     Dates: start: 20081020, end: 20090701
  2. HYDROXYCHLOROQUINE SULFATE [Concomitant]
     Dosage: 200 MG, QD
     Route: 048
     Dates: start: 20051019
  3. SULFASALAZINE [Concomitant]
     Dosage: UNK UNK, UNK
     Dates: start: 20060619
  4. NABUMETONE [Concomitant]
     Dosage: UNK UNK, UNK
     Dates: start: 20051019
  5. FENOFIBRATE [Concomitant]
  6. AVALIDE [Concomitant]
  7. UNSPECIFIED NON-STEROIDAL ANTI-INFLAMMATORY AGENT [Concomitant]

REACTIONS (1)
  - ABDOMINAL PAIN [None]
